FAERS Safety Report 8145308-1 (Version None)
Quarter: 2012Q1

REPORT INFORMATION
  Report Type: 
  Country: None (occurrence: None)
  Receive Date: 20120217
  Receipt Date: 20120210
  Transmission Date: 20120608
  Serious: Yes (Hospitalization)
  Sender: FDA-Public Use
  Company Number: US-US-EMD SERONO, INC.-7003273

PATIENT
  Sex: Female
  Weight: 61 kg

DRUGS (4)
  1. GABAPENTIN [Concomitant]
     Indication: INSOMNIA
  2. REBIF [Suspect]
     Indication: MULTIPLE SCLEROSIS
     Route: 058
     Dates: start: 20090102
  3. GABAPENTIN [Concomitant]
     Indication: PARAESTHESIA
  4. DETROL [Concomitant]
     Indication: POLLAKIURIA

REACTIONS (2)
  - BREAST CANCER [None]
  - INFLUENZA LIKE ILLNESS [None]
